FAERS Safety Report 4884114-8 (Version None)
Quarter: 2006Q1

REPORT INFORMATION
  Report Type: 
  Country: None (occurrence: None)
  Receive Date: 20060118
  Receipt Date: 20051208
  Transmission Date: 20060701
  Serious: Yes (Hospitalization)
  Sender: FDA-Public Use
  Company Number: US-MERCK-0512USA01504

PATIENT
  Age: 85 Year
  Sex: Female
  Weight: 61 kg

DRUGS (12)
  1. VIOXX [Suspect]
     Indication: ARTHRITIS
     Route: 048
     Dates: start: 20020101, end: 20040501
  2. PREDNISONE [Concomitant]
     Route: 065
  3. DURAGESIC-100 [Concomitant]
     Route: 065
  4. FOSAMAX [Concomitant]
     Route: 065
  5. COVERA-HS [Concomitant]
     Route: 065
  6. CALCIUM (UNSPECIFIED) [Concomitant]
     Route: 065
  7. NORVASC [Concomitant]
     Route: 065
  8. LABETALOL HYDROCHLORIDE [Concomitant]
     Route: 065
  9. BEXTRA [Concomitant]
     Route: 065
  10. DARVOCET-N 50 [Concomitant]
     Route: 065
  11. CLONAZEPAM [Concomitant]
     Route: 065
  12. SKELAXIN [Concomitant]
     Route: 065

REACTIONS (4)
  - ANXIETY [None]
  - DEPRESSION [None]
  - HYPERTENSION [None]
  - ISCHAEMIC STROKE [None]
